FAERS Safety Report 7885114-6 (Version None)
Quarter: 2011Q4

REPORT INFORMATION
  Report Type: 
  Country: None (occurrence: None)
  Receive Date: 20111102
  Receipt Date: 20111028
  Transmission Date: 20120403
  Serious: Yes (Death, Hospitalization, Other)
  Sender: FDA-Public Use
  Company Number: BR-ROCHE-780485

PATIENT
  Age: 36 Year
  Sex: Female

DRUGS (2)
  1. AVASTIN [Suspect]
     Indication: BREAST CANCER METASTATIC
     Route: 065
  2. PACLITAXEL [Concomitant]
     Indication: BREAST CANCER METASTATIC

REACTIONS (4)
  - SKIN DISORDER [None]
  - COAGULOPATHY [None]
  - DISEASE PROGRESSION [None]
  - HEPATIC FAILURE [None]
